FAERS Safety Report 4931924-4 (Version None)
Quarter: 2006Q1

REPORT INFORMATION
  Report Type: 
  Country: None (occurrence: None)
  Receive Date: 20060303
  Receipt Date: 20050315
  Transmission Date: 20060701
  Serious: Yes (Disabling)
  Sender: FDA-Public Use
  Company Number: US-MERCK-0503USA03099

PATIENT
  Age: 67 Year
  Sex: Female
  Weight: 74 kg

DRUGS (5)
  1. VIOXX [Suspect]
     Indication: BACK PAIN
     Route: 048
     Dates: start: 19990101
  2. VIOXX [Suspect]
     Indication: ARTHRALGIA
     Route: 048
     Dates: start: 19990101
  3. ADVIL [Concomitant]
     Indication: BACK PAIN
     Route: 065
  4. ADVIL [Concomitant]
     Indication: ARTHRALGIA
     Route: 065
  5. TYLENOL (CAPLET) [Concomitant]
     Route: 065

REACTIONS (3)
  - ANGINA UNSTABLE [None]
  - POLYTRAUMATISM [None]
  - ULCER [None]
